FAERS Safety Report 15022315 (Version 2)
Quarter: 2018Q2

REPORT INFORMATION
  Report Type: Report from Study
  Country: CA (occurrence: CA)
  Receive Date: 20180618
  Receipt Date: 20180626
  Transmission Date: 20180711
  Serious: Yes (Other)
  Sender: FDA-Public Use
  Company Number: CA-JNJFOC-20180601507

PATIENT
  Age: 49 Year
  Sex: Female

DRUGS (1)
  1. STELARA [Suspect]
     Active Substance: USTEKINUMAB
     Indication: CROHN^S DISEASE
     Route: 058
     Dates: start: 20170701

REACTIONS (10)
  - Drug ineffective [Unknown]
  - Off label use [Unknown]
  - Arthralgia [Unknown]
  - Skin infection [Unknown]
  - Wound infection [Not Recovered/Not Resolved]
  - General physical health deterioration [Unknown]
  - Lower respiratory tract infection [Unknown]
  - Pyoderma gangrenosum [Unknown]
  - Crohn^s disease [Not Recovered/Not Resolved]
  - Product use issue [Unknown]

NARRATIVE: CASE EVENT DATE: 2018
